FAERS Safety Report 8421204-7 (Version None)
Quarter: 2012Q2

REPORT INFORMATION
  Report Type: 
  Country: None (occurrence: None)
  Receive Date: 20120608
  Receipt Date: 20120608
  Transmission Date: 20120825
  Serious: Yes (Death)
  Sender: FDA-Public Use
  Company Number: US-PFIZER INC-2005128825

PATIENT
  Age: 62 Year

DRUGS (3)
  1. AMITRIPTYLINE HYDROCHLORIDE [Suspect]
     Route: 065
  2. ETHANOL [Suspect]
     Route: 065
  3. VERAPAMIL HCL [Suspect]
     Indication: HYPERTENSION
     Route: 048

REACTIONS (2)
  - COMPLETED SUICIDE [None]
  - TOXICITY TO VARIOUS AGENTS [None]
